FAERS Safety Report 8176444-1 (Version None)
Quarter: 2012Q1

REPORT INFORMATION
  Report Type: 
  Country: None (occurrence: None)
  Receive Date: 20120229
  Receipt Date: 20120221
  Transmission Date: 20120608
  Serious: Yes (Disabling, Other)
  Sender: FDA-Public Use
  Company Number: ACO_28770_2012

PATIENT
  Age: 37 Year
  Sex: Female
  Weight: 65.8 kg

DRUGS (2)
  1. AMPYRA [Suspect]
     Indication: MULTIPLE SCLEROSIS
     Dosage: 10 MG, Q 12 HRS, ORAL
     Route: 048
     Dates: start: 20110101, end: 20111101
  2. OSCAL 500 +D (CALCIUM CARBONATE, ERGOCALCIFEROL) [Concomitant]

REACTIONS (3)
  - ABASIA [None]
  - SINUSITIS [None]
  - DIZZINESS [None]
